FAERS Safety Report 25141880 (Version 1)
Quarter: 2025Q1

REPORT INFORMATION
  Report Type: Spontaneous
  Country: ES (occurrence: ES)
  Receive Date: 20250331
  Receipt Date: 20250331
  Transmission Date: 20250408
  Serious: Yes (Other)
  Sender: GLAXOSMITHKLINE
  Company Number: ES-GSK-ES2025EME035686

PATIENT

DRUGS (1)
  1. LAMICTAL [Suspect]
     Active Substance: LAMOTRIGINE
     Indication: Product used for unknown indication
     Dates: start: 2021

REACTIONS (3)
  - Colitis ulcerative [Not Recovered/Not Resolved]
  - Product package associated injury [Unknown]
  - Product complaint [Unknown]
